FAERS Safety Report 6851568-7 (Version None)
Quarter: 2010Q3

REPORT INFORMATION
  Report Type: 
  Country: None (occurrence: None)
  Receive Date: 20100717
  Receipt Date: 20080118
  Transmission Date: 20110219
  Serious: Yes (Other)
  Sender: FDA-Public Use
  Company Number: US-PFIZER INC-2008006863

PATIENT
  Sex: Female
  Weight: 56.7 kg

DRUGS (2)
  1. CHANTIX [Suspect]
     Indication: SMOKING CESSATION THERAPY
     Dosage: 21 EVERY 1 DAYS
     Dates: start: 20071201, end: 20080101
  2. BENAZEPRIL HYDROCHLORIDE [Concomitant]

REACTIONS (2)
  - EMOTIONAL DISORDER [None]
  - SUICIDAL IDEATION [None]
